FAERS Safety Report 6438319-5 (Version None)
Quarter: 2009Q4

REPORT INFORMATION
  Report Type: 
  Country: None (occurrence: None)
  Receive Date: 20091112
  Receipt Date: 20091106
  Transmission Date: 20100525
  Serious: Yes (Life-Threatening, Hospitalization, Other)
  Sender: FDA-Public Use
  Company Number: PHHY2009JP42924

PATIENT
  Sex: Female
  Weight: 60 kg

DRUGS (10)
  1. DIOVAN [Suspect]
     Indication: HYPERTENSION
     Dosage: 80 MG, QD
     Route: 048
     Dates: start: 20020320, end: 20090930
  2. DIOVAN [Suspect]
     Dosage: 80 MG, QD
     Route: 048
     Dates: start: 20091015
  3. AMLODIPINE BESYLATE [Suspect]
     Route: 048
  4. ALDACTONE [Suspect]
     Indication: HYPERTENSION
     Dosage: 25 MG DAILY
     Dates: end: 20090930
  5. ALDACTONE [Suspect]
     Dosage: 25 MG DAILY
     Route: 048
     Dates: start: 20091006, end: 20091015
  6. LASIX [Suspect]
     Indication: HYPERTENSION
     Dosage: 40 MG, UNK
     Route: 048
     Dates: start: 20090930
  7. PANALDINE [Concomitant]
     Indication: STENT PLACEMENT
     Dosage: 200 MG, UNK
     Route: 048
     Dates: start: 20090930
  8. ASPIRIN [Concomitant]
     Indication: STENT PLACEMENT
     Dosage: 100 MG, UNK
     Route: 048
     Dates: start: 20090930
  9. EPADEL [Concomitant]
     Indication: HYPERLIPIDAEMIA
     Dosage: 1200 MG, UNK
     Route: 048
     Dates: start: 20090930
  10. NITRODERM [Concomitant]
     Indication: MYOCARDIAL ISCHAEMIA
     Dosage: 25 MG, UNK
     Route: 062
     Dates: start: 20090930

REACTIONS (17)
  - ANURIA [None]
  - BLOOD CREATININE INCREASED [None]
  - BLOOD SODIUM DECREASED [None]
  - BLOOD UREA INCREASED [None]
  - BRADYCARDIA [None]
  - C-REACTIVE PROTEIN INCREASED [None]
  - DECREASED APPETITE [None]
  - DEHYDRATION [None]
  - ELECTROCARDIOGRAM ABNORMAL [None]
  - HAEMODIALYSIS [None]
  - HYPERKALAEMIA [None]
  - MALAISE [None]
  - NEUTROPHIL PERCENTAGE INCREASED [None]
  - NORMOCHROMIC NORMOCYTIC ANAEMIA [None]
  - RENAL IMPAIRMENT [None]
  - URINARY TRACT INFECTION [None]
  - WHITE BLOOD CELL COUNT INCREASED [None]
